FAERS Safety Report 17488404 (Version 2)
Quarter: 2020Q1

REPORT INFORMATION
  Report Type: Spontaneous
  Country: DE (occurrence: DE)
  Receive Date: 20200303
  Receipt Date: 20200306
  Transmission Date: 20200409
  Serious: Yes (Other)
  Sender: FDA-Public Use
  Company Number: NVSC2020DE059391

PATIENT
  Sex: Male

DRUGS (1)
  1. COSENTYX [Suspect]
     Active Substance: SECUKINUMAB
     Indication: PRODUCT USED FOR UNKNOWN INDICATION
     Dosage: UNK, QMO (STARTED 1 YEAR AGO)
     Route: 065

REACTIONS (5)
  - Concomitant disease aggravated [Unknown]
  - Fungal skin infection [Recovering/Resolving]
  - Hepatic cyst [Unknown]
  - Tachycardia [Unknown]
  - Rhinorrhoea [Unknown]
